FAERS Safety Report 10205064 (Version 1)
Quarter: 2014Q2

REPORT INFORMATION
  Report Type: Spontaneous
  Country: FR (occurrence: FR)
  Receive Date: 20140529
  Receipt Date: 20140529
  Transmission Date: 20141212
  Serious: Yes (Hospitalization, Other)
  Sender: FDA-Public Use
  Company Number: FR-ACTAVIS-2014-10856

PATIENT
  Age: 64 Year
  Sex: Female

DRUGS (5)
  1. ROPINIROLE (UNKNOWN) [Suspect]
     Indication: RESTLESS LEGS SYNDROME
     Dosage: 3 MG, DAILY
     Route: 065
  2. FLUOXETINE (UNKNOWN) [Suspect]
     Indication: MAJOR DEPRESSION
     Dosage: UNK
     Route: 065
  3. BUPROPION HYDROCHLORIDE (UNKNOWN) [Suspect]
     Indication: MAJOR DEPRESSION
     Dosage: UNK
     Route: 065
  4. TRAMADOL [Concomitant]
     Indication: RESTLESS LEGS SYNDROME
     Dosage: 100 MG, UNKNOWN
     Route: 065
  5. AGOMELATINE [Concomitant]
     Indication: MAJOR DEPRESSION
     Dosage: UNK
     Route: 065

REACTIONS (5)
  - Withdrawal syndrome [Recovered/Resolved]
  - Major depression [Recovered/Resolved]
  - Impulse-control disorder [Unknown]
  - Restless legs syndrome [Unknown]
  - Condition aggravated [Unknown]
